FAERS Safety Report 6221426-X (Version None)
Quarter: 2009Q2

REPORT INFORMATION
  Report Type: 
  Country: None (occurrence: None)
  Receive Date: 20090610
  Receipt Date: 20090602
  Transmission Date: 20091009
  Serious: Yes (Hospitalization)
  Sender: FDA-Public Use
  Company Number: SG-GILEAD-2008-0018253

PATIENT
  Sex: Male
  Weight: 49 kg

DRUGS (6)
  1. TRUVADA [Suspect]
     Indication: HIV INFECTION
     Route: 048
     Dates: start: 20060622, end: 20080923
  2. TRUVADA [Suspect]
     Dates: start: 20060602, end: 20060616
  3. KALETRA [Suspect]
     Indication: HIV INFECTION
     Route: 048
     Dates: start: 20060622, end: 20080923
  4. KALETRA [Suspect]
     Dates: start: 20060602, end: 20060616
  5. PARA-SELTZER [Concomitant]
  6. BETNOVATE [Concomitant]
     Indication: PRURITUS
     Dates: start: 20060630

REACTIONS (2)
  - CHEST PAIN [None]
  - ELECTROCARDIOGRAM QT PROLONGED [None]
